FAERS Safety Report 5975052-8 (Version None)
Quarter: 2008Q4

REPORT INFORMATION
  Report Type: 
  Country: None (occurrence: None)
  Receive Date: 20081128
  Receipt Date: 20081113
  Transmission Date: 20090506
  Serious: Yes (Other)
  Sender: FDA-Public Use
  Company Number: 2008S1020469

PATIENT
  Age: 5 Month

DRUGS (4)
  1. ETOPOSIDE [Suspect]
     Indication: DRUG USE FOR UNKNOWN INDICATION
  2. CYCLOSPORINE [Suspect]
     Indication: CORD BLOOD TRANSPLANT THERAPY
  3. CYCLOPHOSPHAMIDE [Suspect]
     Indication: CORD BLOOD TRANSPLANT THERAPY
     Dosage: INTRAVENOUS
     Route: 042
  4. TREOSULFAN (TREOSULFAN) [Suspect]
     Indication: CORD BLOOD TRANSPLANT THERAPY
     Dosage: INTRAVENOUS
     Route: 042

REACTIONS (2)
  - ACUTE GRAFT VERSUS HOST DISEASE [None]
  - HYPERTENSION [None]
